FAERS Safety Report 14317833 (Version 1)
Quarter: 2017Q4

REPORT INFORMATION
  Report Type: Spontaneous
  Country: US (occurrence: US)
  Receive Date: 20171221
  Receipt Date: 20171221
  Transmission Date: 20180321
  Serious: Yes (Life-Threatening)
  Sender: FDA-Public Use
  Company Number: None

PATIENT
  Age: 81 Year
  Sex: Male
  Weight: 130 kg

DRUGS (1)
  1. CEFTAZIDIME. [Suspect]
     Active Substance: CEFTAZIDIME
     Indication: URINARY TRACT INFECTION
     Dosage: ?          OTHER FREQUENCY:ONCE;?
     Route: 042

REACTIONS (11)
  - Abdominal pain lower [None]
  - Drug hypersensitivity [None]
  - Oxygen saturation decreased [None]
  - Dyspnoea [None]
  - Pulse absent [None]
  - Cardio-respiratory arrest [None]
  - Blood urine present [None]
  - Urinary tract infection [None]
  - Hypotension [None]
  - Anaphylactic reaction [None]
  - Throat irritation [None]

NARRATIVE: CASE EVENT DATE: 20171220
